FAERS Safety Report 7024132-7 (Version None)
Quarter: 2010Q4

REPORT INFORMATION
  Report Type: 
  Country: None (occurrence: None)
  Receive Date: 20101001
  Receipt Date: 20100920
  Transmission Date: 20110411
  Serious: Yes (Other)
  Sender: FDA-Public Use
  Company Number: US-SANOFI-AVENTIS-2010SA056853

PATIENT
  Age: 68 Year
  Sex: Female

DRUGS (18)
  1. MULTAQ [Suspect]
     Route: 048
     Dates: start: 20100917, end: 20100918
  2. PHENYTOIN SODIUM [Concomitant]
  3. BENICAR [Concomitant]
  4. COUMADIN [Concomitant]
  5. ATENOLOL [Concomitant]
  6. JANUVIA [Concomitant]
  7. LASIX [Concomitant]
  8. HYDROCHLOROTHIAZIDE [Concomitant]
  9. ALLEGRA [Concomitant]
  10. CIPROFLOXACIN [Concomitant]
  11. NEXIUM [Concomitant]
  12. SINGULAIR [Concomitant]
  13. PRAVACHOL [Concomitant]
  14. FLAGYL [Concomitant]
  15. VICODIN [Concomitant]
  16. K-DUR [Concomitant]
  17. TAPAZOLE [Concomitant]
  18. VITAMIN B-12 [Concomitant]

REACTIONS (2)
  - CONVULSION [None]
  - OFF LABEL USE [None]
